FAERS Safety Report 9369707 (Version 1)
Quarter: 2013Q2

REPORT INFORMATION
  Report Type: Spontaneous
  Country: US (occurrence: US)
  Receive Date: 20130626
  Receipt Date: 20130626
  Transmission Date: 20140414
  Serious: No
  Sender: FDA-Public Use
  Company Number: US-MYLANLABS-2012S1018405

PATIENT
  Age: 60 Year
  Sex: Male
  Weight: 78.02 kg

DRUGS (5)
  1. FENTANYL TRANSDERMAL SYSTEM [Suspect]
     Indication: TEMPOROMANDIBULAR JOINT SYNDROME
     Dosage: Q72H
     Route: 062
     Dates: start: 20120515
  2. OMEPRAZOLE DELAYED-RELEASE CAPSULES, USP [Suspect]
     Indication: GASTRITIS
     Route: 048
     Dates: start: 20120615
  3. OMEPRAZOLE DELAYED-RELEASE CAPSULES, USP [Suspect]
     Indication: OFF LABEL USE
     Route: 048
     Dates: start: 20120615
  4. ATENOLOL [Concomitant]
     Dates: start: 2009
  5. LISINOPRIL + HYDROCHLOROTHIAZIDE [Concomitant]
     Dates: start: 2009

REACTIONS (1)
  - Hypotension [Not Recovered/Not Resolved]
